FAERS Safety Report 4531223-9 (Version None)
Quarter: 2004Q4

REPORT INFORMATION
  Report Type: 
  Country: None (occurrence: None)
  Receive Date: 20041206
  Receipt Date: 20040907
  Transmission Date: 20050328
  Serious: No
  Sender: FDA-Public Use
  Company Number: US_0409105470

PATIENT
  Sex: Female

DRUGS (6)
  1. CYMBALTA [Suspect]
     Dosage: 60 MG DAY
     Dates: start: 20040906
  2. CLONAZEPAM [Concomitant]
  3. DILTIAZEM [Concomitant]
  4. LEVOTHYROXINE SODIUM [Concomitant]
  5. CHOLESTEROL [Concomitant]
  6. ... [Concomitant]

REACTIONS (4)
  - ANXIETY [None]
  - CRYING [None]
  - FEAR [None]
  - NERVOUSNESS [None]
